FAERS Safety Report 5197293-2 (Version None)
Quarter: 2007Q1

REPORT INFORMATION
  Report Type: 
  Country: None (occurrence: None)
  Receive Date: 20070103
  Receipt Date: 20061222
  Transmission Date: 20070707
  Serious: Yes (Hospitalization, Disabling, Other)
  Sender: FDA-Public Use
  Company Number: PHFR2006GB03513

PATIENT
  Age: 83 Year
  Sex: Male

DRUGS (2)
  1. DICLOFENAC SODIUM [Suspect]
     Dosage: UNK, UNK
     Route: 065
  2. CLOPIDOGREL [Suspect]
     Dosage: 75 MG, QD
     Route: 065

REACTIONS (5)
  - RETINAL DETACHMENT [None]
  - RETINAL OPERATION [None]
  - VISUAL ACUITY REDUCED [None]
  - VITRECTOMY [None]
  - VITREOUS HAEMORRHAGE [None]
